FAERS Safety Report 4822195-8 (Version None)
Quarter: 2005Q4

REPORT INFORMATION
  Report Type: 
  Country: None (occurrence: None)
  Receive Date: 20051102
  Receipt Date: 20051013
  Transmission Date: 20060501
  Serious: Yes (Other)
  Sender: FDA-Public Use
  Company Number: USA0510110873

PATIENT
  Age: 55 Year
  Sex: Female

DRUGS (2)
  1. EVISTA [Suspect]
     Dates: end: 20050301
  2. FORTEO [Suspect]
     Dates: end: 20050301

REACTIONS (2)
  - BREAST CANCER FEMALE [None]
  - OESTROGEN RECEPTOR ASSAY POSITIVE [None]
